FAERS Safety Report 19237026 (Version 1)
Quarter: 2021Q2

REPORT INFORMATION
  Report Type: Spontaneous
  Country: US (occurrence: US)
  Receive Date: 20210508
  Receipt Date: 20210508
  Transmission Date: 20210717
  Serious: Yes (Other)
  Sender: FDA-Public Use
  Company Number: None

PATIENT
  Age: 29 Day
  Sex: Female
  Weight: 58.5 kg

DRUGS (1)
  1. MYORISAN [Suspect]
     Active Substance: ISOTRETINOIN
     Indication: ACNE
     Dosage: ?          QUANTITY:1 CAPSULE(S);OTHER ROUTE:MOUTH?
     Route: 048
     Dates: start: 20210507

REACTIONS (1)
  - Wrong dose [None]

NARRATIVE: CASE EVENT DATE: 20210507
